FAERS Safety Report 4826835-9 (Version None)
Quarter: 2005Q4

REPORT INFORMATION
  Report Type: 
  Country: None (occurrence: None)
  Receive Date: 20051014
  Receipt Date: 20050705
  Transmission Date: 20060501
  Serious: No
  Sender: FDA-Public Use
  Company Number: 2005SP001719

PATIENT

DRUGS (4)
  1. LUNESTA [Suspect]
     Dosage: ORAL
     Route: 048
     Dates: start: 20050101
  2. CYMBALTA [Concomitant]
  3. TOPAMAX [Concomitant]
  4. VALIUM [Concomitant]

REACTIONS (1)
  - NIGHTMARE [None]
